FAERS Safety Report 18948862 (Version 3)
Quarter: 2021Q2

REPORT INFORMATION
  Report Type: Spontaneous
  Country: JP (occurrence: JP)
  Receive Date: 20210227
  Receipt Date: 20210407
  Transmission Date: 20210717
  Serious: Yes (Hospitalization, Other)
  Sender: FDA-Public Use
  Company Number: JP-ACCORD-218523

PATIENT
  Age: 65 Year
  Sex: Male
  Weight: 69.4 kg

DRUGS (7)
  1. CALCIUM CARBONATE. [Concomitant]
     Active Substance: CALCIUM CARBONATE
     Dosage: PRECIPITATED
  2. FEBUXOSTAT. [Concomitant]
     Active Substance: FEBUXOSTAT
  3. MAGNESIUM CARBONATE [Concomitant]
     Active Substance: MAGNESIUM CARBONATE
  4. CISPLATIN. [Suspect]
     Active Substance: CISPLATIN
     Indication: LUNG SQUAMOUS CELL CARCINOMA STAGE IV
     Dosage: ON DAY 8
     Route: 042
     Dates: start: 2019
  5. TEGAFUR/GIMERACIL/OTERACIL POTASSIUM [Suspect]
     Active Substance: GIMERACIL\OTERACIL\TEGAFUR
     Indication: LUNG SQUAMOUS CELL CARCINOMA STAGE IV
     Dosage: FROM DAYS 1 TO 21
     Route: 048
     Dates: start: 2019
  6. LEVOTHYROXINE/LEVOTHYROXINE SODIUM [Concomitant]
     Active Substance: LEVOTHYROXINE SODIUM
     Indication: HYPOTHYROIDISM
  7. COLECALCIFEROL [Concomitant]
     Active Substance: CHOLECALCIFEROL

REACTIONS (2)
  - Aortic thrombosis [Recovered/Resolved]
  - Orthostatic hypotension [Recovered/Resolved]

NARRATIVE: CASE EVENT DATE: 2019
